FAERS Safety Report 18486799 (Version 1)
Quarter: 2020Q4

REPORT INFORMATION
  Report Type: Spontaneous
  Country: US (occurrence: US)
  Receive Date: 20201110
  Receipt Date: 20201110
  Transmission Date: 20210114
  Serious: Yes (Other)
  Sender: FDA-Public Use
  Company Number: US-INTRA-CELLULAR THERAPIES, INC.-2020ICT00205

PATIENT
  Age: 26 Year
  Sex: Male
  Weight: 115.66 kg

DRUGS (2)
  1. UNSPECIFIED OTHER MEDICATIONS FOR MAJOR DEPRESSIVE DISORDER [Concomitant]
  2. CAPLYTA [Suspect]
     Active Substance: LUMATEPERONE
     Indication: MAJOR DEPRESSION
     Dosage: 42 MG, 1X/DAY AT NIGHT WITH FOOD BEFORE SLEEP
     Dates: start: 20201015

REACTIONS (12)
  - Bradyphrenia [Not Recovered/Not Resolved]
  - Emotional disorder [Not Recovered/Not Resolved]
  - Dizziness [Not Recovered/Not Resolved]
  - Haematemesis [Unknown]
  - Nausea [Not Recovered/Not Resolved]
  - Headache [Not Recovered/Not Resolved]
  - Off label use [Not Recovered/Not Resolved]
  - Feeling abnormal [Not Recovered/Not Resolved]
  - Vomiting [Not Recovered/Not Resolved]
  - Muscle twitching [Not Recovered/Not Resolved]
  - Dry mouth [Not Recovered/Not Resolved]
  - Vertigo [Not Recovered/Not Resolved]

NARRATIVE: CASE EVENT DATE: 202010
